FAERS Safety Report 7322619-0 (Version None)
Quarter: 2011Q1

REPORT INFORMATION
  Report Type: 
  Country: None (occurrence: None)
  Receive Date: 20110301
  Receipt Date: 20100319
  Transmission Date: 20110831
  Serious: Yes (Other)
  Sender: FDA-Public Use
  Company Number: US-PFIZER INC-2010009033

PATIENT
  Sex: Male
  Weight: 73 kg

DRUGS (11)
  1. NITROGLYCERIN [Concomitant]
     Dosage: UNK
     Route: 062
  2. ACETYLSALICYLIC ACID [Concomitant]
     Dosage: 80 MG, UNK
  3. GLUCOPHAGE [Concomitant]
     Dosage: 500 MG, 2X/DAY
  4. PLAVIX [Concomitant]
     Dosage: 75 MG, 1X/DAY
  5. TIMOLOL MALEATE [Concomitant]
     Route: 047
  6. LUMIGAN [Concomitant]
     Route: 047
  7. NORVASC [Concomitant]
     Dosage: 10 MG, UNK
  8. LISINOPRIL [Concomitant]
     Dosage: 40 MG, 2X/DAY
  9. NITROGLYCERIN [Concomitant]
     Dosage: FREQUENCY: AS NEEDED,
     Route: 048
  10. GLUCOTROL XL [Suspect]
     Indication: DIABETES MELLITUS
     Dosage: 5 MG, 1X/DAY
     Route: 048
     Dates: start: 20091201
  11. ALISKIREN [Concomitant]
     Dosage: 150 MG, 2X/DAY

REACTIONS (5)
  - SOMNOLENCE [None]
  - BLOOD GLUCOSE DECREASED [None]
  - DRUG INEFFECTIVE [None]
  - MIDDLE INSOMNIA [None]
  - ABASIA [None]
